FAERS Safety Report 21624363 (Version 1)
Quarter: 2022Q4

REPORT INFORMATION
  Report Type: Spontaneous
  Country: US (occurrence: US)
  Receive Date: 20221121
  Receipt Date: 20221121
  Transmission Date: 20230112
  Serious: No
  Sender: FDA-Public Use
  Company Number: US-BRACCO-2022US01595

PATIENT
  Age: 63 Year
  Sex: Female

DRUGS (11)
  1. LUMASON [Suspect]
     Active Substance: SULFUR HEXAFLUORIDE
     Indication: Echocardiogram
     Dosage: UNK
     Route: 042
     Dates: start: 20220422, end: 20220422
  2. LUMASON [Suspect]
     Active Substance: SULFUR HEXAFLUORIDE
     Indication: Echocardiogram
     Dosage: UNK
     Route: 042
     Dates: start: 20220422, end: 20220422
  3. LUMASON [Suspect]
     Active Substance: SULFUR HEXAFLUORIDE
     Indication: Echocardiogram
     Dosage: UNK
     Route: 042
     Dates: start: 20220422, end: 20220422
  4. TOPROL XL [Concomitant]
     Active Substance: METOPROLOL SUCCINATE
  5. NORVASC [Concomitant]
     Active Substance: AMLODIPINE BESYLATE
  6. NEURONTIN [Concomitant]
     Active Substance: GABAPENTIN
  7. SYNTHROID [Concomitant]
     Active Substance: LEVOTHYROXINE SODIUM
  8. ATIVAN [Concomitant]
     Active Substance: LORAZEPAM
  9. COZAAR [Concomitant]
     Active Substance: LOSARTAN POTASSIUM
  10. CRESTOR [Concomitant]
     Active Substance: ROSUVASTATIN CALCIUM
  11. VALTREX S [Concomitant]

REACTIONS (4)
  - Claustrophobia [Recovered/Resolved]
  - Back pain [Recovered/Resolved]
  - Pruritus [Recovered/Resolved]
  - Cough [Recovered/Resolved]

NARRATIVE: CASE EVENT DATE: 20220422
